FAERS Safety Report 17628877 (Version 4)
Quarter: 2024Q4

REPORT INFORMATION
  Report Type: Spontaneous
  Country: DE (occurrence: DE)
  Receive Date: 20200406
  Receipt Date: 20241226
  Transmission Date: 20250115
  Serious: Yes (Death, Life-Threatening, Hospitalization, Other)
  Sender: TEVA
  Company Number: DE-EMA-DD-20200324-SANDEVHP-122251

PATIENT
  Sex: Female
  Weight: 52 kg

DRUGS (29)
  1. ACYCLOVIR [Suspect]
     Active Substance: ACYCLOVIR
     Indication: Systemic lupus erythematosus
     Dosage: DOSAGE TEXT: 400 MG, TID
     Route: 065
  2. ACYCLOVIR [Suspect]
     Active Substance: ACYCLOVIR
     Indication: Systemic lupus erythematosus
     Dosage: 400 MG, 3X/DAY
     Route: 065
  3. ACYCLOVIR [Suspect]
     Active Substance: ACYCLOVIR
     Indication: Systemic lupus erythematosus
     Dosage: 400 MILLIGRAM, QD
     Route: 065
  4. FLUVASTATIN [Suspect]
     Active Substance: FLUVASTATIN SODIUM
     Indication: Systemic lupus erythematosus
     Dosage: UNK UNK, QD 20 (0-0-1)
     Route: 065
  5. AZATHIOPRINE [Suspect]
     Active Substance: AZATHIOPRINE
     Indication: White blood cell count decreased
     Route: 065
     Dates: start: 20100419, end: 201904
  6. AZATHIOPRINE [Suspect]
     Active Substance: AZATHIOPRINE
     Indication: White blood cell count decreased
     Dosage: UNK
     Route: 065
     Dates: start: 1997, end: 2008
  7. AZATHIOPRINE [Suspect]
     Active Substance: AZATHIOPRINE
     Indication: White blood cell count decreased
     Route: 065
     Dates: start: 201906, end: 201907
  8. DETRUSITOL [Suspect]
     Active Substance: TOLTERODINE TARTRATE
     Indication: Systemic lupus erythematosus
     Dosage: UNK
     Route: 065
  9. MORPHINE [Suspect]
     Active Substance: MORPHINE
     Indication: Systemic lupus erythematosus
     Dosage: DOSAGE TEXT: UNK, 20 TO S5X/D,
     Route: 065
  10. PENTACARINAT [Suspect]
     Active Substance: PENTAMIDINE ISETHIONATE
     Indication: Systemic lupus erythematosus
     Dosage: DOSAGE TEXT: UNK
     Route: 055
     Dates: start: 201904
  11. PREDNISOLONE [Suspect]
     Active Substance: PREDNISOLONE
     Indication: Systemic lupus erythematosus
     Dosage: 5 MG, QD
     Route: 065
     Dates: start: 1988
  12. VALSARTAN [Suspect]
     Active Substance: VALSARTAN
     Indication: Systemic lupus erythematosus
     Dosage: UNK UNK, BID 160 (1-0-1)
     Route: 065
  13. HYDROXYCHLOROQUINE [Concomitant]
     Active Substance: HYDROXYCHLOROQUINE
     Indication: Product used for unknown indication
     Dates: start: 1994, end: 1997
  14. MCP [Concomitant]
     Active Substance: METOCLOPRAMIDE HYDROCHLORIDE
     Indication: Product used for unknown indication
     Dosage: UNK UNK, TID 10
  15. CHOLECALCIFEROL [Concomitant]
     Active Substance: CHOLECALCIFEROL
     Indication: Product used for unknown indication
     Dosage: DOSAGE TEXT: UNK UNK, WE, 20000
  16. LEVOTHYROXINE [Suspect]
     Active Substance: LEVOTHYROXINE
     Indication: Systemic lupus erythematosus
     Dosage: UNK
     Route: 065
  17. NITRENDIPINE [Concomitant]
     Active Substance: NITRENDIPINE
     Indication: Product used for unknown indication
     Dosage: DOSAGE TEXT: UNK
  18. BENLYSTA [Suspect]
     Active Substance: BELIMUMAB
     Indication: Systemic lupus erythematosus
     Dosage: 200 MG, WE ,
     Route: 058
     Dates: start: 201806, end: 201807
  19. BENLYSTA [Suspect]
     Active Substance: BELIMUMAB
     Indication: Systemic lupus erythematosus
     Dosage: DOSAGE TEXT: 10 MG/KG, WE ,
     Route: 058
     Dates: start: 201711, end: 201812
  20. BENLYSTA [Suspect]
     Active Substance: BELIMUMAB
     Indication: Systemic lupus erythematosus
     Dosage: DOSAGE TEXT: 200 MG, WE
     Route: 058
     Dates: start: 201708, end: 201904
  21. MORPHINE [Concomitant]
     Active Substance: MORPHINE
     Indication: Product used for unknown indication
     Dosage: DOSAGE TEXT: ?UNK UNK, UP TO 30 RET (1-0-1)
  22. UMECLIDINIUM BROMIDE\VILANTEROL TRIFENATATE [Concomitant]
     Active Substance: UMECLIDINIUM BROMIDE\VILANTEROL TRIFENATATE
     Indication: Product used for unknown indication
     Dosage: UNK, 55/221 PUSH
     Route: 050
  23. EZETIMIBE [Concomitant]
     Active Substance: EZETIMIBE
     Indication: Product used for unknown indication
     Dosage: UNK, QD 10 (0-0-1)
  24. ISDN [Concomitant]
     Indication: Product used for unknown indication
     Dosage: UNK, BID20 RET (1-1-0)
  25. LEVOTHYROXINE SODIUM [Concomitant]
     Active Substance: LEVOTHYROXINE SODIUM
     Indication: Product used for unknown indication
     Dosage: DOSAGE TEXT: ?UNK UNK, QD 50 (1-0-0)
  26. DULOXETINE [Concomitant]
     Active Substance: DULOXETINE
     Indication: Product used for unknown indication
     Dosage: UNK, QD 30 (1-0-0)
  27. SAB SIMPLEX [Concomitant]
     Indication: Product used for unknown indication
     Dosage: UNK, 30GTT TO 3X/D
  28. MOLSIDOMINE [Suspect]
     Active Substance: MOLSIDOMINE
     Indication: Systemic lupus erythematosus
     Dosage: UNK UNK, QD 8 RET (0-0-1)
     Route: 065
  29. ELIQUIS [Suspect]
     Active Substance: APIXABAN
     Indication: Systemic lupus erythematosus
     Route: 065

REACTIONS (28)
  - Sepsis [Fatal]
  - Gastritis haemorrhagic [Unknown]
  - Fall [Unknown]
  - Coombs positive haemolytic anaemia [Unknown]
  - Hypertension [Unknown]
  - Gastrooesophageal reflux disease [Unknown]
  - Antinuclear antibody negative [Unknown]
  - Antiphospholipid syndrome [Unknown]
  - Pneumocystis jirovecii pneumonia [Fatal]
  - Pleuritic pain [Unknown]
  - Lymphopenia [Fatal]
  - Colitis ulcerative [Unknown]
  - Hypothyroidism [Unknown]
  - Peritonitis [Fatal]
  - Herpes simplex reactivation [Unknown]
  - Depression [Unknown]
  - Systemic lupus erythematosus [Unknown]
  - Thrombocytopenia [Unknown]
  - Skin disorder [Unknown]
  - Hyperlipidaemia [Unknown]
  - Osteonecrosis [Unknown]
  - Pancreatitis acute [Unknown]
  - Complex regional pain syndrome [Unknown]
  - Intentional product use issue [Unknown]
  - Leukopenia [Unknown]
  - Anxiety disorder [Unknown]
  - Urinary tract infection [Unknown]
  - Erysipelas [Unknown]

NARRATIVE: CASE EVENT DATE: 19900101
